FAERS Safety Report 6407041-3 (Version None)
Quarter: 2009Q4

REPORT INFORMATION
  Report Type: 
  Country: None (occurrence: None)
  Receive Date: 20091020
  Receipt Date: 20091014
  Transmission Date: 20100525
  Serious: Yes (Death)
  Sender: FDA-Public Use
  Company Number: PHHY2009CL35526

PATIENT
  Age: 86 Year
  Sex: Female

DRUGS (4)
  1. EXELON [Suspect]
     Indication: DEMENTIA WITH LEWY BODIES
     Dosage: 10 MG/ONE TABLET PER DAY
     Route: 048
     Dates: start: 20071001
  2. DILTIAZEM [Concomitant]
     Dosage: 2 TABLET PER DAY
  3. LEXAPRO [Concomitant]
     Dosage: 1 TABLET PER DAY
  4. SPIRON [Concomitant]

REACTIONS (1)
  - GENERAL PHYSICAL HEALTH DETERIORATION [None]
